FAERS Safety Report 5109283-6 (Version None)
Quarter: 2006Q3

REPORT INFORMATION
  Report Type: 
  Country: None (occurrence: None)
  Receive Date: 20060918
  Receipt Date: 20060908
  Transmission Date: 20061208
  Serious: Yes (Hospitalization)
  Sender: FDA-Public Use
  Company Number: TPA2006A01495

PATIENT
  Sex: Male

DRUGS (3)
  1. ROZEREM [Suspect]
     Dosage: PER ORAL
     Route: 048
  2. UNSPECIFIED HYPERCHOLESTEROL TREATMENT (CHOLESTEROL AND TRIGLYCERIDE R [Concomitant]
  3. UNSPECIFIED HYPERTENSION MEDICATION (ANTIHYPERTENSIVES) [Concomitant]

REACTIONS (4)
  - ANXIETY [None]
  - BLOOD PRESSURE INCREASED [None]
  - CHEST PAIN [None]
  - INSOMNIA [None]
